FAERS Safety Report 9099228 (Version 1)
Quarter: 2013Q1

REPORT INFORMATION
  Report Type: Spontaneous
  Country: FR (occurrence: FR)
  Receive Date: 20130214
  Receipt Date: 20130214
  Transmission Date: 20140127
  Serious: Yes (Life-Threatening, Hospitalization, Other)
  Sender: FDA-Public Use
  Company Number: FR-PFIZER INC-2013058433

PATIENT
  Age: 60 Year
  Sex: Female

DRUGS (5)
  1. XANAX [Suspect]
     Route: 048
  2. XEROQUEL [Suspect]
     Route: 048
  3. PARACETAMOL [Suspect]
  4. MOPRAL [Concomitant]
  5. PROKINYL [Concomitant]

REACTIONS (6)
  - Suicide attempt [Unknown]
  - Conduction disorder [Recovered/Resolved]
  - Depressed level of consciousness [Recovered/Resolved]
  - Analgesic drug level increased [Unknown]
  - Somnolence [Unknown]
  - Hypotension [Unknown]
